FAERS Safety Report 13005324 (Version 2)
Quarter: 2017Q1

REPORT INFORMATION
  Report Type: Report from Study
  Country: US (occurrence: US)
  Receive Date: 20161207
  Receipt Date: 20170213
  Transmission Date: 20170428
  Serious: Yes (Hospitalization, Other)
  Sender: FDA-Public Use
  Company Number: US-AMGEN-USASL2016153437

PATIENT
  Age: 70 Year
  Sex: Female

DRUGS (2)
  1. REPATHA [Suspect]
     Active Substance: EVOLOCUMAB
     Indication: HYPERLIPIDAEMIA
     Dosage: 140 MG, Q2WK
     Route: 065
     Dates: start: 20161026
  2. TRICOR [Suspect]
     Active Substance: FENOFIBRATE
     Indication: PRODUCT USED FOR UNKNOWN INDICATION
     Dosage: UNK
     Route: 065

REACTIONS (8)
  - Gallbladder disorder [Unknown]
  - Pain [Unknown]
  - Abdominal pain upper [Unknown]
  - Dyspepsia [Unknown]
  - Nausea [Unknown]
  - Influenza [Unknown]
  - Influenza like illness [Unknown]
  - Injection site pain [Unknown]

NARRATIVE: CASE EVENT DATE: 201610
